FAERS Safety Report 4808455-5 (Version None)
Quarter: 2005Q4

REPORT INFORMATION
  Report Type: 
  Country: None (occurrence: None)
  Receive Date: 20051021
  Receipt Date: 20011008
  Transmission Date: 20060501
  Serious: No
  Sender: FDA-Public Use
  Company Number: FR_011000229

PATIENT
  Age: 14 Year
  Sex: Male

DRUGS (3)
  1. ZYPREXA [Suspect]
     Indication: PSYCHOTIC DISORDER
     Dosage: 30 MG/DAY
     Dates: start: 20010101
  2. PHENYTOIN [Concomitant]
  3. TERCIAN (CYAMEMAZINE) [Concomitant]

REACTIONS (6)
  - ALANINE AMINOTRANSFERASE INCREASED [None]
  - ANTIPSYCHOTIC DRUG LEVEL BELOW THERAPEUTIC [None]
  - ASPARTATE AMINOTRANSFERASE INCREASED [None]
  - GAMMA-GLUTAMYLTRANSFERASE INCREASED [None]
  - PRESCRIBED OVERDOSE [None]
  - PROTHROMBIN LEVEL DECREASED [None]
